FAERS Safety Report 11058016 (Version 1)
Quarter: 2015Q2

REPORT INFORMATION
  Report Type: Spontaneous
  Country: US (occurrence: None)
  Receive Date: 20150422
  Receipt Date: 20150422
  Transmission Date: 20150821
  Serious: Yes (Death, Life-Threatening, Hospitalization, Other)
  Sender: FDA-Public Use
  Company Number: None

PATIENT
  Age: 65 Year
  Sex: Female
  Weight: 56.1 kg

DRUGS (18)
  1. RISPERDAL [Concomitant]
     Active Substance: RISPERIDONE
  2. FOSAMAX [Concomitant]
     Active Substance: ALENDRONATE SODIUM
  3. NYSTATIN. [Concomitant]
     Active Substance: NYSTATIN
  4. LAMISIL [Concomitant]
     Active Substance: TERBINAFINE HYDROCHLORIDE
  5. WARFARIN 5 MG [Suspect]
     Active Substance: WARFARIN
     Indication: ATRIAL FIBRILLATION
     Dosage: LONG-TERM. THIS DOSE 3 DAYS.
     Route: 048
  6. NORCO [Concomitant]
     Active Substance: ACETAMINOPHEN\HYDROCODONE BITARTRATE
  7. FUROSEMIDE. [Concomitant]
     Active Substance: FUROSEMIDE
  8. REFRESH LIQUIGEL [Concomitant]
     Active Substance: CARBOXYMETHYLCELLULOSE SODIUM
  9. DEPAKOTE ER [Concomitant]
     Active Substance: DIVALPROEX SODIUM
  10. LISINOPRIL. [Concomitant]
     Active Substance: LISINOPRIL
  11. LOVENOX [Concomitant]
     Active Substance: ENOXAPARIN SODIUM
  12. BENZTROPINE [Concomitant]
     Active Substance: BENZTROPINE
  13. CELEXA [Concomitant]
     Active Substance: CITALOPRAM HYDROBROMIDE
  14. VITAMIN D3 [Concomitant]
     Active Substance: CHOLECALCIFEROL
  15. XEROFORM PETROLATUM DRESSING [Concomitant]
  16. ACETAMINOPHEN. [Concomitant]
     Active Substance: ACETAMINOPHEN
  17. SYNTHROID [Concomitant]
     Active Substance: LEVOTHYROXINE SODIUM
  18. K-DUR [Concomitant]
     Active Substance: POTASSIUM CHLORIDE

REACTIONS (10)
  - Enterococcus test positive [None]
  - Osteomyelitis [None]
  - Circulatory collapse [None]
  - International normalised ratio increased [None]
  - Anaemia [None]
  - Haematoma [None]
  - Thrombocytopenia [None]
  - Haemorrhage [None]
  - Sepsis [None]
  - Intestinal mass [None]

NARRATIVE: CASE EVENT DATE: 20150102
